FAERS Safety Report 7432008-6 (Version None)
Quarter: 2011Q2

REPORT INFORMATION
  Report Type: 
  Country: None (occurrence: None)
  Receive Date: 20110422
  Receipt Date: 20110407
  Transmission Date: 20111010
  Serious: Yes (Death, Hospitalization, Other)
  Sender: FDA-Public Use
  Company Number: US-CELGENEUS-163-21880-10123403

PATIENT
  Sex: Male

DRUGS (10)
  1. PACKED RED BLOOD CELLS [Concomitant]
  2. LIPITOR [Concomitant]
     Dosage: LOW DOSE
     Route: 048
  3. REVLIMID [Suspect]
     Dosage: 10 MILLIGRAM
     Route: 048
     Dates: start: 20101028, end: 20101202
  4. PACKED RED BLOOD CELLS [Concomitant]
     Route: 051
  5. BETA BLOCKER [Concomitant]
     Dosage: LOW DOSE
     Route: 065
  6. REVLIMID [Suspect]
     Indication: MULTIPLE MYELOMA
     Dosage: 25 MILLIGRAM
     Route: 048
     Dates: start: 20090401
  7. ZOMETA [Concomitant]
     Route: 051
  8. PLATELETS [Concomitant]
     Route: 051
  9. ASPIRIN [Concomitant]
     Indication: PROPHYLAXIS
     Dosage: LOW DOSE
     Route: 065
  10. DEXAMETHASONE [Concomitant]
     Dosage: 20 MILLIGRAM
     Route: 065

REACTIONS (8)
  - MULTIPLE MYELOMA [None]
  - NEUTROPENIA [None]
  - CEREBROVASCULAR ACCIDENT [None]
  - PNEUMONIA [None]
  - DISEASE PROGRESSION [None]
  - PANCYTOPENIA [None]
  - ARRHYTHMIA [None]
  - MYOCARDIAL INFARCTION [None]
